FAERS Safety Report 15794846 (Version 1)
Quarter: 2019Q1

REPORT INFORMATION
  Report Type: Spontaneous
  Country: ES (occurrence: ES)
  Receive Date: 20190107
  Receipt Date: 20190107
  Transmission Date: 20190417
  Serious: Yes (Death, Hospitalization)
  Sender: FDA-Public Use
  Company Number: ES-PFIZER INC-2019005727

PATIENT
  Age: 88 Year
  Sex: Male

DRUGS (4)
  1. DESVENLAFAXINE SUCCINATE MONOHYDRATE [Suspect]
     Active Substance: DESVENLAFAXINE SUCCINATE
     Indication: DEPRESSION
     Dosage: 100 MG/24 HOURS (100 MG DAY)
     Route: 048
     Dates: start: 20180101, end: 20180207
  2. DUODART [Concomitant]
     Active Substance: DUTASTERIDE\TAMSULOSIN
     Indication: BENIGN PROSTATIC HYPERPLASIA
     Dosage: 1 DF, DAILY (0-0-1), 0.5MG/0.4MG/24 HOURS
     Route: 048
     Dates: start: 20070101
  3. CUSIMOLOL [Concomitant]
     Active Substance: TIMOLOL MALEATE
     Dosage: 1 DF, 2X/DAY (1-0-1)
     Route: 047
     Dates: start: 20070101
  4. ZINOSAL [Suspect]
     Active Substance: TIANEPTINE SODIUM
     Indication: DEPRESSION
     Dosage: 12.5 MG, 2X/DAY (1-0-1 EACH 12H)
     Route: 048
     Dates: start: 20170219, end: 20180207

REACTIONS (1)
  - Intestinal pseudo-obstruction [Fatal]

NARRATIVE: CASE EVENT DATE: 20180207
